FAERS Safety Report 9786700 (Version 3)
Quarter: 2014Q1

REPORT INFORMATION
  Report Type: Report from Study
  Country: US (occurrence: US)
  Receive Date: 20131227
  Receipt Date: 20140102
  Transmission Date: 20141002
  Serious: Yes (Hospitalization)
  Sender: FDA-Public Use
  Company Number: US-009507513-2011SP030100

PATIENT
  Age: 41 Year
  Sex: Female

DRUGS (5)
  1. BLINDED CORIFOLLITROPIN ALFA [Suspect]
     Indication: OVARIAN HYPERSTIMULATION SYNDROME
     Dosage: UNK
     Route: 058
     Dates: start: 20100709, end: 20100709
  2. BLINDED THERAPY [Suspect]
     Indication: OVARIAN HYPERSTIMULATION SYNDROME
     Dosage: UNK
     Route: 058
     Dates: start: 20100709, end: 20100715
  3. VITAMINS (UNSPECIFIED) [Concomitant]
     Indication: NUTRITIONAL SUPPLEMENTATION
     Dosage: 1 CAPSULE
     Route: 048
     Dates: start: 201003
  4. DOCOSAHEXAENOIC ACID [Concomitant]
     Indication: NUTRITIONAL SUPPLEMENTATION
     Dosage: 200 MG, QD
     Route: 048
     Dates: start: 201003
  5. FOLIC ACID [Concomitant]
     Indication: NUTRITIONAL SUPPLEMENTATION
     Dosage: 2.7 MG, QD
     Route: 048
     Dates: start: 201003

REACTIONS (1)
  - Cephalo-pelvic disproportion [Recovered/Resolved]
